FAERS Safety Report 14420746 (Version 1)
Quarter: 2018Q1

REPORT INFORMATION
  Report Type: Spontaneous
  Country: US (occurrence: US)
  Receive Date: 20180122
  Receipt Date: 20180122
  Transmission Date: 20180509
  Serious: Yes (Hospitalization)
  Sender: FDA-Public Use
  Company Number: US-ROCHE-1978048

PATIENT
  Age: 82 Year
  Sex: Male
  Weight: 71.6 kg

DRUGS (3)
  1. BENDAMUSTINE [Concomitant]
     Active Substance: BENDAMUSTINE
     Route: 042
     Dates: start: 20170719, end: 20170818
  2. RITUXAN [Suspect]
     Active Substance: RITUXIMAB
     Indication: CHRONIC LYMPHOCYTIC LEUKAEMIA
     Route: 042
     Dates: start: 20170721, end: 20170818
  3. TREANDA [Concomitant]
     Active Substance: BENDAMUSTINE HYDROCHLORIDE
     Indication: CHRONIC LYMPHOCYTIC LEUKAEMIA
     Route: 042
     Dates: start: 20170720, end: 20170721

REACTIONS (2)
  - Pyrexia [Recovered/Resolved]
  - Pyrexia [Not Recovered/Not Resolved]

NARRATIVE: CASE EVENT DATE: 20170803
